FAERS Safety Report 10298910 (Version 2)
Quarter: 2014Q3

REPORT INFORMATION
  Report Type: Spontaneous
  Country: US (occurrence: US)
  Receive Date: 20140711
  Receipt Date: 20140711
  Transmission Date: 20150326
  Serious: No
  Sender: FDA-Public Use
  Company Number: US-GILEAD-2013-0079284

PATIENT
  Age: 71 Year
  Sex: Male

DRUGS (19)
  1. NIASPAN [Concomitant]
     Active Substance: NIACIN
  2. CLONAZEPAM. [Concomitant]
     Active Substance: CLONAZEPAM
  3. POTASSIUM CHLORIDE. [Concomitant]
     Active Substance: POTASSIUM CHLORIDE
  4. UROXATRAL [Concomitant]
     Active Substance: ALFUZOSIN HYDROCHLORIDE
  5. XARELTO [Concomitant]
     Active Substance: RIVAROXABAN
  6. TRAVATAN [Concomitant]
     Active Substance: TRAVOPROST
  7. VIAGRA [Concomitant]
     Active Substance: SILDENAFIL CITRATE
  8. ALPHAGAN P [Concomitant]
     Active Substance: BRIMONIDINE TARTRATE
  9. FOLIC ACID. [Concomitant]
     Active Substance: FOLIC ACID
  10. OCUVITE                            /06812401/ [Concomitant]
  11. TORSEMIDE. [Concomitant]
     Active Substance: TORSEMIDE
  12. NEXIUM [Concomitant]
     Active Substance: ESOMEPRAZOLE MAGNESIUM
  13. TESTIM [Concomitant]
     Active Substance: TESTOSTERONE
  14. TYVASO [Concomitant]
     Active Substance: TREPROSTINIL
  15. PRIMIDONE. [Concomitant]
     Active Substance: PRIMIDONE
  16. LETAIRIS [Suspect]
     Active Substance: AMBRISENTAN
     Indication: PULMONARY HYPERTENSION
     Dosage: 10 MG, QD
     Route: 048
     Dates: start: 20070723
  17. SPIRIVA [Concomitant]
     Active Substance: TIOTROPIUM BROMIDE MONOHYDRATE
  18. OXYGEN. [Concomitant]
     Active Substance: OXYGEN
  19. AVODART [Concomitant]
     Active Substance: DUTASTERIDE

REACTIONS (1)
  - Peripheral artery aneurysm [Not Recovered/Not Resolved]

NARRATIVE: CASE EVENT DATE: 20130723
